FAERS Safety Report 16761967 (Version 1)
Quarter: 2019Q3

REPORT INFORMATION
  Report Type: Other
  Country: CN (occurrence: CN)
  Receive Date: 20190830
  Receipt Date: 20190830
  Transmission Date: 20191005
  Serious: Yes (Other)
  Sender: FDA-Public Use
  Company Number: CN-GEHC-2019CSU004440

PATIENT

DRUGS (2)
  1. OMNIPAQUE [Suspect]
     Active Substance: IOHEXOL
     Indication: CONTRAST MEDIA ALLERGY
  2. OMNIPAQUE [Suspect]
     Active Substance: IOHEXOL
     Indication: SKIN TEST
     Dosage: 100 ML, SINGLE
     Route: 023
     Dates: start: 20190823, end: 20190823

REACTIONS (5)
  - Syncope [Recovering/Resolving]
  - Off label use [Recovering/Resolving]
  - Loss of consciousness [Recovering/Resolving]
  - Pallor [Recovering/Resolving]
  - Nuchal rigidity [Recovering/Resolving]

NARRATIVE: CASE EVENT DATE: 20190823
